FAERS Safety Report 4762099-2 (Version None)
Quarter: 2005Q3

REPORT INFORMATION
  Report Type: 
  Country: None (occurrence: None)
  Receive Date: 20050901
  Receipt Date: 20050505
  Transmission Date: 20060218
  Serious: No
  Sender: FDA-Public Use
  Company Number: 200510914BWH

PATIENT
  Age: 47 Year
  Sex: Male

DRUGS (2)
  1. LEVITRA [Suspect]
     Indication: ERECTILE DYSFUNCTION
     Dosage: 10 MG TOTAL DAILY ORAL
     Route: 048
     Dates: start: 20050503
  2. CIALIS [Concomitant]

REACTIONS (1)
  - NAUSEA [None]
